FAERS Safety Report 19704052 (Version 1)
Quarter: 2021Q3

REPORT INFORMATION
  Report Type: Spontaneous
  Country: DE (occurrence: DE)
  Receive Date: 20210816
  Receipt Date: 20210816
  Transmission Date: 20211014
  Serious: Yes (Other)
  Sender: FDA-Public Use
  Company Number: DE-HQ SPECIALTY-DE-2021INT000141

PATIENT
  Age: 39 Year
  Sex: Female

DRUGS (4)
  1. LEVETIRACETAM. [Suspect]
     Active Substance: LEVETIRACETAM
     Indication: PARTIAL SEIZURES
     Dosage: 500 MG, BID
     Route: 065
  2. ACETAMINOPHEN. [Concomitant]
     Active Substance: ACETAMINOPHEN
     Indication: HEADACHE
     Dosage: MAXIMUM 2000 MG DAILY FOR 1 WEEK
     Route: 065
  3. LACOSAMIDE. [Concomitant]
     Active Substance: LACOSAMIDE
     Indication: SEIZURE
     Dosage: 50 MG, UNK
     Route: 065
  4. METAMIZOLE [Concomitant]
     Active Substance: METAMIZOLE
     Indication: ANALGESIC THERAPY
     Dosage: UNK
     Route: 065

REACTIONS (1)
  - Liver injury [Recovered/Resolved]
